FAERS Safety Report 24076845 (Version 2)
Quarter: 2024Q3

REPORT INFORMATION
  Report Type: Spontaneous
  Country: AT (occurrence: AT)
  Receive Date: 20240711
  Receipt Date: 20240720
  Transmission Date: 20241016
  Serious: Yes (Death, Other)
  Sender: AMGEN
  Company Number: AT-AMGEN-AUTSP2024134681

PATIENT
  Age: 42 Year
  Sex: Female

DRUGS (1)
  1. INTERFERON GAMMA [Suspect]
     Active Substance: INTERFERON GAMMA
     Indication: Mycobacterium avium complex infection
     Dosage: UNK
     Route: 065
     Dates: start: 202306, end: 202310

REACTIONS (2)
  - Death [Fatal]
  - Off label use [Unknown]
